FAERS Safety Report 9198679 (Version 2)
Quarter: 2013Q2

REPORT INFORMATION
  Report Type: Spontaneous
  Country: IT (occurrence: IT)
  Receive Date: 20130329
  Receipt Date: 20130403
  Transmission Date: 20140414
  Serious: Yes (Hospitalization, Other)
  Sender: FDA-Public Use
  Company Number: IT-PFIZER INC-2013099897

PATIENT
  Age: 50 Year
  Sex: Female

DRUGS (4)
  1. LYRICA [Suspect]
     Indication: INTENTIONAL OVERDOSE
     Dosage: 14 UNITS OF 75 MG, SINGLE
     Route: 048
     Dates: start: 20130308
  2. ALPRAZOLAM [Suspect]
     Indication: INTENTIONAL OVERDOSE
     Dosage: 20 DF (20 UNSPECIFIC UNITS), SINGLE
     Route: 048
     Dates: start: 20130308
  3. SIRDALUD [Suspect]
     Indication: INTENTIONAL OVERDOSE
     Dosage: 8 UNITS OF 2 MG, SINGLE
     Route: 048
     Dates: start: 20130308
  4. XERISTAR [Suspect]
     Indication: INTENTIONAL OVERDOSE
     Dosage: 80 UNITS OF 60 MG, SINGLE
     Route: 048
     Dates: start: 20130308

REACTIONS (6)
  - Drug abuse [Recovered/Resolved]
  - Toxicity to various agents [Recovered/Resolved]
  - Sopor [Recovered/Resolved]
  - Major depression [Unknown]
  - Fall [Recovered/Resolved]
  - Excoriation [Recovered/Resolved]
